FAERS Safety Report 12336193 (Version 2)
Quarter: 2016Q2

REPORT INFORMATION
  Report Type: Spontaneous
  Country: US (occurrence: US)
  Receive Date: 20160505
  Receipt Date: 20160601
  Transmission Date: 20160815
  Serious: No
  Sender: FDA-Public Use
  Company Number: US-PFIZER INC-2016242127

PATIENT
  Sex: Female

DRUGS (4)
  1. MAGNESIUM SULFATE. [Interacting]
     Active Substance: MAGNESIUM SULFATE
     Dosage: 400 MG, DAILY
  2. NEURONTIN [Interacting]
     Active Substance: GABAPENTIN
     Indication: SLEEP DISORDER
     Dosage: 100 MG, UNK
  3. NEURONTIN [Interacting]
     Active Substance: GABAPENTIN
     Indication: HEADACHE
  4. NEURONTIN [Suspect]
     Active Substance: GABAPENTIN
     Indication: ANXIETY
     Dosage: 200 MG, UNK

REACTIONS (7)
  - Nausea [Unknown]
  - Fatigue [Unknown]
  - Product use issue [Unknown]
  - Dizziness [Unknown]
  - Insomnia [Unknown]
  - Drug dose omission [Unknown]
  - Drug interaction [Unknown]
